FAERS Safety Report 5186095-9 (Version None)
Quarter: 2006Q4

REPORT INFORMATION
  Report Type: 
  Country: None (occurrence: None)
  Receive Date: 20061220
  Receipt Date: 20061023
  Transmission Date: 20070319
  Serious: No
  Sender: FDA-Public Use
  Company Number: US-GLAXOSMITHKLINE-A0624532A

PATIENT
  Age: 40 Year
  Sex: Female

DRUGS (2)
  1. NICODERM CQ [Suspect]
  2. NICODERM CQ [Suspect]

REACTIONS (10)
  - APPLICATION SITE ERYTHEMA [None]
  - APPLICATION SITE IRRITATION [None]
  - APPLICATION SITE PRURITUS [None]
  - DYSPNOEA [None]
  - HEART RATE INCREASED [None]
  - HYPERSENSITIVITY [None]
  - MALAISE [None]
  - NAUSEA [None]
  - NERVOUSNESS [None]
  - TREMOR [None]
